FAERS Safety Report 15836848 (Version 1)
Quarter: 2019Q1

REPORT INFORMATION
  Report Type: Spontaneous
  Country: PL (occurrence: PL)
  Receive Date: 20190117
  Receipt Date: 20190117
  Transmission Date: 20190417
  Serious: Yes (Other)
  Sender: FDA-Public Use
  Company Number: PL-BAYER-2019-010538

PATIENT
  Age: 34 Year
  Sex: Female

DRUGS (2)
  1. BETAFERON [Suspect]
     Active Substance: INTERFERON BETA-1B
     Indication: MULTIPLE SCLEROSIS RELAPSE
     Dosage: UNK
     Dates: start: 2011
  2. BETAFERON [Suspect]
     Active Substance: INTERFERON BETA-1B
     Indication: MULTIPLE SCLEROSIS RELAPSE
     Dosage: UNK
     Dates: start: 201404

REACTIONS (12)
  - Pancytopenia [None]
  - Viral infection [None]
  - Injection site necrosis [None]
  - Aspartate aminotransferase [None]
  - Gamma-glutamyltransferase increased [None]
  - Fungal skin infection [None]
  - Hepatic function abnormal [None]
  - Haemophagocytic lymphohistiocytosis [None]
  - Alanine aminotransferase increased [None]
  - Injection site inflammation [None]
  - Pyrexia [Recovered/Resolved]
  - Depression [None]

NARRATIVE: CASE EVENT DATE: 201412
